FAERS Safety Report 8320420-2 (Version None)
Quarter: 2012Q2

REPORT INFORMATION
  Report Type: 
  Country: None (occurrence: None)
  Receive Date: 20120426
  Receipt Date: 20120426
  Transmission Date: 20120825
  Serious: Yes (Hospitalization, Other)
  Sender: FDA-Public Use
  Company Number: None

PATIENT
  Age: 36 Year
  Sex: Female
  Weight: 57.1532 kg

DRUGS (1)
  1. DESOGESTREL AND ETHINYL ESTRADIOL [Suspect]
     Indication: CONTRACEPTION
     Dosage: 0.15MG / 0.03MG ONCE A DAY
     Dates: start: 20120201, end: 20120401

REACTIONS (6)
  - OVARIAN CYST [None]
  - GASTROOESOPHAGEAL REFLUX DISEASE [None]
  - LYMPHADENITIS [None]
  - MIGRAINE [None]
  - ABDOMINAL PAIN LOWER [None]
  - PELVIC PAIN [None]
